FAERS Safety Report 4579494-7 (Version None)
Quarter: 2005Q1

REPORT INFORMATION
  Report Type: 
  Country: None (occurrence: None)
  Receive Date: 20050209
  Receipt Date: 20050128
  Transmission Date: 20050727
  Serious: Yes (Hospitalization, Disabling, Other)
  Sender: FDA-Public Use
  Company Number: 2004107978

PATIENT
  Age: 47 Year
  Sex: Female
  Weight: 54 kg

DRUGS (2)
  1. LINEZOLID TABLET (LINEZOLID) [Suspect]
     Indication: NOCARDIOSIS
     Dosage: 1200 MG (600 MG BID)
     Dates: start: 20040906, end: 20041012
  2. LINEZOLID SUSPENSION , ORAL (LINEZOLID) [Suspect]
     Indication: NOCARDIOSIS
     Dosage: 600 MG (DAILY) ORAL
     Route: 048
     Dates: end: 20041129

REACTIONS (3)
  - ASTHENIA [None]
  - DEPRESSION [None]
  - NEUROPATHY PERIPHERAL [None]
